FAERS Safety Report 10173090 (Version 1)
Quarter: 2014Q2

REPORT INFORMATION
  Report Type: Spontaneous
  Country: US (occurrence: US)
  Receive Date: 20140515
  Receipt Date: 20140515
  Transmission Date: 20141212
  Serious: No
  Sender: FDA-Public Use
  Company Number: US-BAYER-2014-070837

PATIENT
  Age: 85 Year
  Sex: Male
  Weight: 72.11 kg

DRUGS (2)
  1. ALEVE CAPLET [Suspect]
     Dosage: 1/2 DF, ONCE
     Route: 048
     Dates: start: 20140512, end: 20140512
  2. XANAX [Concomitant]

REACTIONS (2)
  - Throat irritation [Recovered/Resolved]
  - Foreign body [Recovered/Resolved]
